FAERS Safety Report 16764383 (Version 3)
Quarter: 2021Q3

REPORT INFORMATION
  Report Type: Report from Study
  Country: CR (occurrence: CR)
  Receive Date: 20190902
  Receipt Date: 20210804
  Transmission Date: 20211014
  Serious: Yes (Other)
  Sender: FDA-Public Use
  Company Number: PHHY2015CR158174

PATIENT
  Age: 70 Year
  Sex: Female

DRUGS (10)
  1. EXFORGE [Suspect]
     Active Substance: AMLODIPINE BESYLATE\VALSARTAN
     Indication: BLOOD PRESSURE INCREASED
     Dosage: 1 DF, QD (AMLODIPINE 10 MG, VALSARTAN 320 MG)
     Route: 048
     Dates: start: 2014
  2. EXFORGE HCT [Suspect]
     Active Substance: AMLODIPINE BESYLATE\HYDROCHLOROTHIAZIDE\VALSARTAN
     Indication: BLOOD PRESSURE INCREASED
     Dosage: 182.5 MG, (AMLODIPINE 10 MG, HYDROCHLOROTHIAZIDE 12.5 MG, VALSARTAN 160 MG), UNK
     Route: 065
  3. HYDROCHLOROTHIAZIDE. [Suspect]
     Active Substance: HYDROCHLOROTHIAZIDE
     Indication: PRODUCT USED FOR UNKNOWN INDICATION
     Dosage: 25 MG, UNK
     Route: 065
  4. CONCOR [Concomitant]
     Active Substance: BISOPROLOL FUMARATE
     Indication: ARRHYTHMIA
     Dosage: 5 MG, QD (HALF TABLET ON AM AND PM)
     Route: 048
  5. CONCOR [Concomitant]
     Active Substance: BISOPROLOL FUMARATE
     Dosage: 10 MG, UNK
     Route: 065
     Dates: start: 201905
  6. EXFORGE [Suspect]
     Active Substance: AMLODIPINE BESYLATE\VALSARTAN
     Dosage: 1 DF, QD (AMLODIPINE 10 MG, VALSARTAN 160 MG)
     Route: 048
  7. AMIODARONA//AMIODARONE [Concomitant]
     Active Substance: AMIODARONE
     Indication: PRODUCT USED FOR UNKNOWN INDICATION
     Dosage: 0.5 DF, QD
     Route: 048
  8. LEVOTIROXINA [Concomitant]
     Indication: HYPOTHYROIDISM
     Dosage: 1 DF, QD
     Route: 065
  9. SEROQUEL [Concomitant]
     Active Substance: QUETIAPINE FUMARATE
     Indication: PRODUCT USED FOR UNKNOWN INDICATION
     Dosage: 25 MG, QD
     Route: 065
  10. EXFORGE HCT [Suspect]
     Active Substance: AMLODIPINE BESYLATE\HYDROCHLOROTHIAZIDE\VALSARTAN
     Dosage: 195 MG,(AMLODIPINE 10 MG, HYDROCHLOROTHIAZIDE 25 MG, VALSARTAN 160 MG)
     Route: 065

REACTIONS (20)
  - Peripheral swelling [Unknown]
  - Anxiety [Unknown]
  - Renal disorder [Unknown]
  - Arrhythmia [Unknown]
  - Fear [Unknown]
  - Memory impairment [Unknown]
  - Fatigue [Unknown]
  - Drug ineffective [Unknown]
  - Feeling of despair [Unknown]
  - Blood pressure increased [Unknown]
  - Spinal disorder [Unknown]
  - Tachycardia [Unknown]
  - Extrasystoles [Unknown]
  - Fluid retention [Unknown]
  - Blood pressure fluctuation [Unknown]
  - Blood pressure abnormal [Unknown]
  - Myocardial infarction [Unknown]
  - Dysuria [Unknown]
  - Pain [Unknown]
  - Fall [Unknown]

NARRATIVE: CASE EVENT DATE: 2014
